FAERS Safety Report 10750826 (Version 1)
Quarter: 2015Q1

REPORT INFORMATION
  Report Type: Spontaneous
  Country: US (occurrence: None)
  Receive Date: 20150128
  Receipt Date: 20150128
  Transmission Date: 20150721
  Serious: Yes (Hospitalization)
  Sender: FDA-Public Use
  Company Number: FK201500334

PATIENT
  Age: 64 Year
  Sex: Male

DRUGS (2)
  1. DEXAMETHASONE. [Suspect]
     Active Substance: DEXAMETHASONE
     Indication: GOUT
     Route: 048
  2. ALLOPURINOL. [Concomitant]
     Active Substance: ALLOPURINOL

REACTIONS (7)
  - Haematochezia [None]
  - Treatment failure [None]
  - Cytomegalovirus infection [None]
  - Cytomegalovirus colitis [None]
  - Haemoglobin decreased [None]
  - Colitis ischaemic [None]
  - Lower gastrointestinal haemorrhage [None]
